FAERS Safety Report 11815452 (Version 1)
Quarter: 2015Q4

REPORT INFORMATION
  Report Type: Spontaneous
  Country: FR (occurrence: FR)
  Receive Date: 20151209
  Receipt Date: 20151209
  Transmission Date: 20160305
  Serious: Yes (Other)
  Sender: FDA-Public Use
  Company Number: FR-MYLANLABS-2015M1043009

PATIENT

DRUGS (1)
  1. PIPERACILLINE TAZOBACTAM MYLAN POUDRE POUR SOLUTION POUR PERFUSION [Suspect]
     Active Substance: PIPERACILLIN SODIUM\TAZOBACTAM SODIUM
     Indication: CANDIDA SEPSIS
     Dosage: 4 G, TID
     Route: 042
     Dates: start: 20151019, end: 20151102

REACTIONS (4)
  - Thrombocytopenia [Recovered/Resolved]
  - Cholestasis [Unknown]
  - Hepatocellular injury [Unknown]
  - Febrile neutropenia [Recovered/Resolved]

NARRATIVE: CASE EVENT DATE: 20151023
